FAERS Safety Report 21848510 (Version 1)
Quarter: 2023Q1

REPORT INFORMATION
  Report Type: Spontaneous
  Country: US (occurrence: None)
  Receive Date: 20230110
  Receipt Date: 20230110
  Transmission Date: 20230418
  Serious: Yes (Hospitalization)
  Sender: FDA-Public Use
  Company Number: None

PATIENT
  Age: 71 Year
  Sex: Male

DRUGS (1)
  1. ABIRATERONE [Suspect]
     Active Substance: ABIRATERONE
     Indication: Prostate cancer
     Dosage: FREQUENCY : DAILY;?
     Route: 048
     Dates: start: 20221123, end: 20221223

REACTIONS (5)
  - Asthenia [None]
  - Condition aggravated [None]
  - Oedema peripheral [None]
  - Pain [None]
  - Weight decreased [None]

NARRATIVE: CASE EVENT DATE: 20221227
